FAERS Safety Report 10342974 (Version 1)
Quarter: 2014Q3

REPORT INFORMATION
  Report Type: Spontaneous
  Country: US (occurrence: US)
  Receive Date: 20140725
  Receipt Date: 20140725
  Transmission Date: 20150326
  Serious: No
  Sender: FDA-Public Use
  Company Number: US-NOVEN-14US009489

PATIENT
  Age: 56 Year
  Sex: Female
  Weight: 63.49 kg

DRUGS (1)
  1. BRISDELLE [Suspect]
     Active Substance: PAROXETINE MESYLATE
     Indication: HOT FLUSH
     Dosage: 7.5 MG, EVENING
     Route: 048
     Dates: start: 20140317, end: 20140417

REACTIONS (4)
  - Weight increased [Not Recovered/Not Resolved]
  - Nausea [Recovered/Resolved]
  - Abdominal pain upper [Recovered/Resolved]
  - Abdominal distension [Not Recovered/Not Resolved]

NARRATIVE: CASE EVENT DATE: 201403
